FAERS Safety Report 10032302 (Version 5)
Quarter: 2014Q3

REPORT INFORMATION
  Report Type: Report from Study
  Country: US (occurrence: US)
  Receive Date: 20140324
  Receipt Date: 20140908
  Transmission Date: 20150326
  Serious: Yes (Other)
  Sender: FDA-Public Use
  Company Number: PHEH2013US025064

PATIENT
  Age: 46 Year
  Sex: Female

DRUGS (9)
  1. VALIUM [Concomitant]
     Active Substance: DIAZEPAM
  2. DILAUDID [Concomitant]
     Active Substance: HYDROMORPHONE HYDROCHLORIDE
  3. TASIGNA [Suspect]
     Active Substance: NILOTINIB
     Indication: MYELOID LEUKAEMIA
     Dosage: 150 MG, BID
     Route: 048
     Dates: start: 20131126
  4. VISTARIL [Concomitant]
     Active Substance: HYDROXYZINE PAMOATE
  5. VICODIN [Concomitant]
     Active Substance: ACETAMINOPHEN\HYDROCODONE BITARTRATE
  6. MOMETASONE [Concomitant]
     Active Substance: MOMETASONE
  7. COLACE [Concomitant]
     Active Substance: DOCUSATE SODIUM
  8. DESONIDE. [Concomitant]
     Active Substance: DESONIDE
  9. DIAZEPAM. [Concomitant]
     Active Substance: DIAZEPAM

REACTIONS (7)
  - Bronchitis [Unknown]
  - Cognitive disorder [Unknown]
  - Leukaemia recurrent [Unknown]
  - Rash generalised [Unknown]
  - Muscle spasms [Not Recovered/Not Resolved]
  - Fungal infection [Not Recovered/Not Resolved]
  - Nausea [Not Recovered/Not Resolved]

NARRATIVE: CASE EVENT DATE: 20131126
